FAERS Safety Report 23517215 (Version 2)
Quarter: 2024Q1

REPORT INFORMATION
  Report Type: Spontaneous
  Country: GB (occurrence: GB)
  Receive Date: 20240213
  Receipt Date: 20240229
  Transmission Date: 20240409
  Serious: Yes (Other)
  Sender: FDA-Public Use
  Company Number: GB-JNJFOC-20240219013

PATIENT
  Age: 56 Year
  Weight: 68 kg

DRUGS (1)
  1. MINOXIDIL [Suspect]
     Active Substance: MINOXIDIL
     Indication: Alopecia
     Dosage: 1G A DAY (BUT RARELY TAKEN); DRUG BATCH NUMBER: NOT FAKE - BOUGHT FROM BOOTS
     Route: 065
     Dates: start: 20240201

REACTIONS (2)
  - Vitreous floaters [Not Recovered/Not Resolved]
  - Overdose [Unknown]

NARRATIVE: CASE EVENT DATE: 20240201
